FAERS Safety Report 10007372 (Version 1)
Quarter: 2014Q1

REPORT INFORMATION
  Report Type: Spontaneous
  Country: US (occurrence: US)
  Receive Date: 20140313
  Receipt Date: 20140313
  Transmission Date: 20141002
  Serious: Yes (Other)
  Sender: FDA-Public Use
  Company Number: US-GLAXOSMITHKLINE-A1064752A

PATIENT
  Age: 62 Year
  Sex: Female
  Weight: 152.7 kg

DRUGS (1)
  1. AVANDIA [Suspect]

REACTIONS (1)
  - Adverse event [Unknown]
